FAERS Safety Report 9399896 (Version 1)
Quarter: 2013Q3

REPORT INFORMATION
  Report Type: Report from Study
  Country: CA (occurrence: CA)
  Receive Date: 20130715
  Receipt Date: 20130715
  Transmission Date: 20140515
  Serious: Yes (Other)
  Sender: FDA-Public Use
  Company Number: CA-JNJFOC-20130705412

PATIENT
  Age: 69 Year
  Sex: Female
  Weight: 77 kg

DRUGS (12)
  1. REMICADE [Suspect]
     Indication: CROHN^S DISEASE
     Route: 042
     Dates: start: 20070501
  2. CALCIUM [Concomitant]
     Route: 065
  3. NORVASC [Concomitant]
     Dosage: DAILY
     Route: 065
  4. B12 [Concomitant]
     Route: 048
  5. ECASA [Concomitant]
     Route: 065
  6. BARLEY GREEN [Concomitant]
     Dosage: 1 TABLE SPOON
     Route: 065
  7. MULTIVITS [Concomitant]
     Route: 065
  8. FOLIC ACID [Concomitant]
     Route: 048
  9. SALAGEN [Concomitant]
     Route: 048
  10. FLUCONAZOLE [Concomitant]
     Dosage: DAILY
     Route: 065
  11. VENTOLIN [Concomitant]
     Dosage: 2- PUFFS
     Route: 055
  12. SYNTHROID [Concomitant]
     Route: 065

REACTIONS (5)
  - Road traffic accident [Unknown]
  - Hiatus hernia [Unknown]
  - Spondylitis [Unknown]
  - Intervertebral disc disorder [Unknown]
  - Arthropathy [Unknown]
